FAERS Safety Report 24234782 (Version 2)
Quarter: 2025Q2

REPORT INFORMATION
  Report Type: Spontaneous
  Country: NL (occurrence: NL)
  Receive Date: 20240821
  Receipt Date: 20250514
  Transmission Date: 20250716
  Serious: Yes (Other)
  Sender: MYLAN
  Company Number: NL-ALG-BCL-20230609

PATIENT
  Age: 9 Year
  Sex: Male

DRUGS (48)
  1. POLYETHYLENE GLYCOLS [Suspect]
     Active Substance: POLYETHYLENE GLYCOLS
     Indication: Constipation
  2. POLYETHYLENE GLYCOLS [Suspect]
     Active Substance: POLYETHYLENE GLYCOLS
     Route: 048
  3. POLYETHYLENE GLYCOLS [Suspect]
     Active Substance: POLYETHYLENE GLYCOLS
     Route: 048
  4. POLYETHYLENE GLYCOLS [Suspect]
     Active Substance: POLYETHYLENE GLYCOLS
  5. GRANISETRON [Suspect]
     Active Substance: GRANISETRON
     Indication: Nausea
  6. GRANISETRON [Suspect]
     Active Substance: GRANISETRON
     Route: 048
  7. GRANISETRON [Suspect]
     Active Substance: GRANISETRON
     Route: 048
  8. GRANISETRON [Suspect]
     Active Substance: GRANISETRON
  9. ALBUTEROL [Suspect]
     Active Substance: ALBUTEROL
     Indication: Asthma
  10. ALBUTEROL [Suspect]
     Active Substance: ALBUTEROL
     Route: 055
  11. ALBUTEROL [Suspect]
     Active Substance: ALBUTEROL
     Route: 055
  12. ALBUTEROL [Suspect]
     Active Substance: ALBUTEROL
  13. DESLORATADINE [Suspect]
     Active Substance: DESLORATADINE
     Indication: Asthma
  14. DESLORATADINE [Suspect]
     Active Substance: DESLORATADINE
     Route: 048
  15. DESLORATADINE [Suspect]
     Active Substance: DESLORATADINE
     Route: 048
  16. DESLORATADINE [Suspect]
     Active Substance: DESLORATADINE
  17. ARIPIPRAZOLE [Suspect]
     Active Substance: ARIPIPRAZOLE
     Indication: Autism spectrum disorder
  18. ARIPIPRAZOLE [Suspect]
     Active Substance: ARIPIPRAZOLE
     Route: 048
  19. ARIPIPRAZOLE [Suspect]
     Active Substance: ARIPIPRAZOLE
     Route: 048
  20. ARIPIPRAZOLE [Suspect]
     Active Substance: ARIPIPRAZOLE
  21. FLUTICASONE [Suspect]
     Active Substance: FLUTICASONE
     Indication: Asthma
  22. FLUTICASONE [Suspect]
     Active Substance: FLUTICASONE
     Route: 045
  23. FLUTICASONE [Suspect]
     Active Substance: FLUTICASONE
     Route: 045
  24. FLUTICASONE [Suspect]
     Active Substance: FLUTICASONE
  25. CRIZOTINIB [Suspect]
     Active Substance: CRIZOTINIB
     Indication: Neoplasm malignant
     Dosage: 220 MILLIGRAM/SQ. METER, BID (440 MILLIGRAM/SQ. METER, QD)
     Dates: start: 20230211, end: 20230523
  26. CRIZOTINIB [Suspect]
     Active Substance: CRIZOTINIB
     Dosage: 220 MILLIGRAM/SQ. METER, BID (440 MILLIGRAM/SQ. METER, QD)
     Route: 048
     Dates: start: 20230211, end: 20230523
  27. CRIZOTINIB [Suspect]
     Active Substance: CRIZOTINIB
     Dosage: 220 MILLIGRAM/SQ. METER, BID (440 MILLIGRAM/SQ. METER, QD)
     Route: 048
     Dates: start: 20230211, end: 20230523
  28. CRIZOTINIB [Suspect]
     Active Substance: CRIZOTINIB
     Dosage: 220 MILLIGRAM/SQ. METER, BID (440 MILLIGRAM/SQ. METER, QD)
     Dates: start: 20230211, end: 20230523
  29. BECLOMETHASONE DIPROPIONATE [Suspect]
     Active Substance: BECLOMETHASONE DIPROPIONATE
     Indication: Asthma
     Dosage: 2 DOSAGE FORM, BID
     Dates: start: 20230320
  30. BECLOMETHASONE DIPROPIONATE [Suspect]
     Active Substance: BECLOMETHASONE DIPROPIONATE
     Dosage: 2 DOSAGE FORM, BID
     Route: 055
     Dates: start: 20230320
  31. BECLOMETHASONE DIPROPIONATE [Suspect]
     Active Substance: BECLOMETHASONE DIPROPIONATE
     Dosage: 2 DOSAGE FORM, BID
     Route: 055
     Dates: start: 20230320
  32. BECLOMETHASONE DIPROPIONATE [Suspect]
     Active Substance: BECLOMETHASONE DIPROPIONATE
     Dosage: 2 DOSAGE FORM, BID
     Dates: start: 20230320
  33. CHOLECALCIFEROL [Suspect]
     Active Substance: CHOLECALCIFEROL
     Indication: Prophylaxis
  34. CHOLECALCIFEROL [Suspect]
     Active Substance: CHOLECALCIFEROL
     Route: 048
  35. CHOLECALCIFEROL [Suspect]
     Active Substance: CHOLECALCIFEROL
     Route: 048
  36. CHOLECALCIFEROL [Suspect]
     Active Substance: CHOLECALCIFEROL
  37. MELATONIN [Suspect]
     Active Substance: MELATONIN
     Indication: Autism spectrum disorder
  38. MELATONIN [Suspect]
     Active Substance: MELATONIN
     Route: 048
  39. MELATONIN [Suspect]
     Active Substance: MELATONIN
     Route: 048
  40. MELATONIN [Suspect]
     Active Substance: MELATONIN
  41. METOCLOPRAMIDE [Suspect]
     Active Substance: METOCLOPRAMIDE
     Indication: Nausea
  42. METOCLOPRAMIDE [Suspect]
     Active Substance: METOCLOPRAMIDE
     Route: 048
  43. METOCLOPRAMIDE [Suspect]
     Active Substance: METOCLOPRAMIDE
     Route: 048
  44. METOCLOPRAMIDE [Suspect]
     Active Substance: METOCLOPRAMIDE
  45. Klysma sorbit [Concomitant]
     Indication: Constipation
  46. Klysma sorbit [Concomitant]
     Route: 054
  47. Klysma sorbit [Concomitant]
     Route: 054
  48. Klysma sorbit [Concomitant]

REACTIONS (6)
  - Sinus bradycardia [Not Recovered/Not Resolved]
  - Cyanosis [Unknown]
  - Electrocardiogram abnormal [Unknown]
  - Heart rate decreased [Unknown]
  - Constipation [Unknown]
  - Nausea [Unknown]

NARRATIVE: CASE EVENT DATE: 20230522
